FAERS Safety Report 11381554 (Version 3)
Quarter: 2015Q4

REPORT INFORMATION
  Report Type: Spontaneous
  Country: ES (occurrence: ES)
  Receive Date: 20150814
  Receipt Date: 20151015
  Transmission Date: 20160304
  Serious: Yes (Hospitalization)
  Sender: FDA-Public Use
  Company Number: ES-PFIZER INC-2015113384

PATIENT
  Age: 67 Year
  Sex: Male

DRUGS (2)
  1. XALKORI [Suspect]
     Active Substance: CRIZOTINIB
     Indication: LUNG ADENOCARCINOMA STAGE IV
     Dosage: 250 MG, 2X/DAY (EVERY 12 HOURS)
     Route: 048
     Dates: start: 20131216, end: 20150528
  2. OMNIC OCAS [Concomitant]
     Active Substance: TAMSULOSIN HYDROCHLORIDE
     Indication: BENIGN PROSTATIC HYPERPLASIA
     Dosage: 0.4 MG, 1 DF, 1X/DAY, AT NIGHTS
     Route: 048
     Dates: start: 20100128

REACTIONS (3)
  - Perinephric abscess [Recovered/Resolved]
  - Oedema peripheral [Unknown]
  - Renal cyst [Recovering/Resolving]

NARRATIVE: CASE EVENT DATE: 20150305
